FAERS Safety Report 10075955 (Version 1)
Quarter: 2014Q2

REPORT INFORMATION
  Report Type: Spontaneous
  Country: FR (occurrence: FR)
  Receive Date: 20140414
  Receipt Date: 20140414
  Transmission Date: 20141212
  Serious: Yes (Hospitalization)
  Sender: FDA-Public Use
  Company Number: PHHY2014FR044792

PATIENT
  Age: 46 Year
  Sex: Female

DRUGS (7)
  1. TASIGNA [Suspect]
     Dosage: 600 MG, QD
     Route: 048
     Dates: start: 20140116, end: 20140213
  2. CORTANCYL [Concomitant]
     Dosage: 5 MG, UNK
  3. LEVOTHYROX [Concomitant]
  4. IMETH [Concomitant]
     Dosage: 10 MG, UNK
  5. SPECIAFOLDINE [Concomitant]
     Dosage: 5 MG, UNK
  6. MONOTILDIEM [Concomitant]
  7. OMEPRAZOLE [Concomitant]

REACTIONS (2)
  - Leukopenia [Recovered/Resolved]
  - Anaemia [Recovered/Resolved]
